FAERS Safety Report 4373891-0 (Version None)
Quarter: 2004Q2

REPORT INFORMATION
  Report Type: 
  Country: None (occurrence: None)
  Receive Date: 20040603
  Receipt Date: 20040521
  Transmission Date: 20050107
  Serious: Yes (Hospitalization, Other)
  Sender: FDA-Public Use
  Company Number: 2004034716

PATIENT
  Sex: 0

DRUGS (2)
  1. PHENYTOIN SODIUM [Suspect]
     Indication: ILL-DEFINED DISORDER
     Dosage: 425 MG (2 IN 1 D), ORAL
     Route: 048
  2. CARBAMAZEPINE [Concomitant]

REACTIONS (3)
  - BLOOD ALBUMIN DECREASED [None]
  - CARDIAC DISORDER [None]
  - CONVULSION [None]
